FAERS Safety Report 23282593 (Version 1)
Quarter: 2023Q4

REPORT INFORMATION
  Report Type: Spontaneous
  Country: GB (occurrence: GB)
  Receive Date: 20231211
  Receipt Date: 20231211
  Transmission Date: 20240110
  Serious: Yes (Hospitalization)
  Sender: FDA-Public Use
  Company Number: GB-MYLANLABS-2023M1120838

PATIENT
  Sex: Male

DRUGS (1)
  1. CLOZARIL [Suspect]
     Active Substance: CLOZAPINE
     Indication: Product used for unknown indication
     Dosage: UNK
     Route: 048
     Dates: start: 20231113, end: 20231118

REACTIONS (6)
  - Hospitalisation [Unknown]
  - Dizziness [Unknown]
  - Cellulitis [Recovered/Resolved]
  - Off label use [Unknown]
  - Sedation [Unknown]
  - Ill-defined disorder [Unknown]
